FAERS Safety Report 20835055 (Version 1)
Quarter: 2022Q2

REPORT INFORMATION
  Report Type: Spontaneous
  Country: HU (occurrence: HU)
  Receive Date: 20220516
  Receipt Date: 20220516
  Transmission Date: 20220721
  Serious: Yes (Other)
  Sender: FDA-Public Use
  Company Number: HU-NOVARTISPH-NVSC2022HU110494

PATIENT
  Age: 75 Year
  Sex: Female

DRUGS (17)
  1. DOCETAXEL [Suspect]
     Active Substance: DOCETAXEL
     Indication: Adenocarcinoma
     Dosage: UNK
     Route: 065
     Dates: start: 2007, end: 200802
  2. CYCLOPHOSPHAMIDE [Suspect]
     Active Substance: CYCLOPHOSPHAMIDE
     Indication: Adenocarcinoma
     Dosage: UNK
     Route: 065
     Dates: start: 2007, end: 200802
  3. DOXORUBICIN [Suspect]
     Active Substance: DOXORUBICIN
     Indication: Adenocarcinoma
     Dosage: UNK
     Route: 065
     Dates: start: 2007, end: 200802
  4. LETROZOLE [Suspect]
     Active Substance: LETROZOLE
     Indication: Adenocarcinoma
     Dosage: UNK
     Route: 065
     Dates: start: 2008, end: 201303
  5. TRAMADOL [Suspect]
     Active Substance: TRAMADOL
     Indication: Pain
     Dosage: UNK
     Route: 065
     Dates: start: 201504
  6. ZOLEDRONIC ACID [Suspect]
     Active Substance: ZOLEDRONIC ACID
     Indication: Adenocarcinoma
     Dosage: 4 MG, QMO
     Route: 065
     Dates: start: 201504
  7. PACLITAXEL [Suspect]
     Active Substance: PACLITAXEL
     Indication: Breast cancer
     Dosage: UNK
     Route: 065
     Dates: start: 202009
  8. KISQALI [Suspect]
     Active Substance: RIBOCICLIB
     Indication: Breast cancer
     Dosage: 600 MG
     Route: 065
     Dates: start: 20201125
  9. KISQALI [Suspect]
     Active Substance: RIBOCICLIB
     Dosage: 400 MG
     Route: 065
     Dates: start: 202012
  10. DENOSUMAB [Suspect]
     Active Substance: DENOSUMAB
     Indication: Breast cancer
     Dosage: UNK
     Route: 065
     Dates: start: 20201110
  11. FULVESTRANT [Suspect]
     Active Substance: FULVESTRANT
     Indication: Breast cancer
     Dosage: UNK
     Route: 065
     Dates: start: 20201125
  12. TRASTUZUMAB [Concomitant]
     Active Substance: TRASTUZUMAB
     Indication: Adenocarcinoma
     Dosage: UNK
     Route: 065
  13. HERCEPTIN [Concomitant]
     Active Substance: TRASTUZUMAB
     Indication: Breast cancer
     Dosage: UNK
     Route: 065
  14. ANASTROZOLE [Concomitant]
     Active Substance: ANASTROZOLE
     Indication: Adenocarcinoma
     Dosage: 1 MG, QD
     Route: 065
     Dates: start: 201504
  15. XGEVA [Concomitant]
     Active Substance: DENOSUMAB
     Indication: Breast cancer
     Dosage: UNK
     Route: 065
     Dates: start: 202012
  16. XGEVA [Concomitant]
     Active Substance: DENOSUMAB
     Dosage: UNK
     Route: 065
  17. PERJETA [Concomitant]
     Active Substance: PERTUZUMAB
     Indication: Breast cancer
     Dosage: UNK
     Route: 065
     Dates: start: 202009

REACTIONS (15)
  - Osteomyelitis [Unknown]
  - Metastasis [Recovered/Resolved]
  - Necrosis [Unknown]
  - Thrombocytopenia [Unknown]
  - Breast cancer [Unknown]
  - Drug interaction [Unknown]
  - Platelet disorder [Unknown]
  - Tumour marker abnormal [Recovering/Resolving]
  - Electrocardiogram QT interval [Recovered/Resolved]
  - Blood lactate dehydrogenase increased [Unknown]
  - Anaemia [Unknown]
  - Blood alkaline phosphatase increased [Unknown]
  - Gastrointestinal disorder [Recovered/Resolved]
  - Back pain [Recovering/Resolving]
  - Weight increased [Unknown]

NARRATIVE: CASE EVENT DATE: 20150101
